FAERS Safety Report 18758013 (Version 1)
Quarter: 2021Q1

REPORT INFORMATION
  Report Type: Spontaneous
  Country: DE (occurrence: DE)
  Receive Date: 20210119
  Receipt Date: 20210119
  Transmission Date: 20210419
  Serious: Yes (Other)
  Sender: FDA-Public Use
  Company Number: NVSC2021DE009923

PATIENT
  Age: 73 Year
  Sex: Female
  Weight: 90 kg

DRUGS (2)
  1. HEPARIN [Suspect]
     Active Substance: HEPARIN SODIUM
     Indication: PRODUCT USED FOR UNKNOWN INDICATION
     Dosage: UNK (ANWENDUNG UBER 7 TAGE LANG)
     Route: 065
  2. TORASEMIDE [Suspect]
     Active Substance: TORSEMIDE
     Indication: CARDIAC FAILURE
     Dosage: 30 MG,QD (20 MG 1?1/2?0)
     Route: 048
     Dates: start: 20200811, end: 20201218

REACTIONS (1)
  - Acute myeloid leukaemia [Recovered/Resolved with Sequelae]
